FAERS Safety Report 7878401-9 (Version None)
Quarter: 2011Q4

REPORT INFORMATION
  Report Type: 
  Country: None (occurrence: None)
  Receive Date: 20111028
  Receipt Date: 20111021
  Transmission Date: 20120403
  Serious: Yes (Other)
  Sender: FDA-Public Use
  Company Number: JPI-P-017817

PATIENT
  Age: 67 Year
  Sex: Female
  Weight: 85.7298 kg

DRUGS (1)
  1. XYREM [Suspect]
     Indication: CATAPLEXY
     Dosage: ORAL ; (4GRAM 1ST DOSE/ 3.75GRAM 2ND DOSE),ORAL
     Route: 048
     Dates: start: 20040101

REACTIONS (3)
  - FALL [None]
  - UPPER LIMB FRACTURE [None]
  - GAIT DISTURBANCE [None]
